FAERS Safety Report 6527835-3 (Version None)
Quarter: 2010Q1

REPORT INFORMATION
  Report Type: 
  Country: None (occurrence: None)
  Receive Date: 20100106
  Receipt Date: 20100104
  Transmission Date: 20100710
  Serious: Yes (Hospitalization)
  Sender: FDA-Public Use
  Company Number: HR-BAYER-201010137GPV

PATIENT
  Age: 67 Year
  Sex: Male
  Weight: 80 kg

DRUGS (7)
  1. AVELOX [Suspect]
     Indication: PNEUMONIA
     Route: 042
     Dates: start: 20091027, end: 20091029
  2. KLAVOCIN [Concomitant]
     Indication: PNEUMONIA
     Dosage: TOTAL DAILY DOSE: 2 G
     Route: 048
     Dates: start: 20091022, end: 20091026
  3. FRAGMIN [Concomitant]
     Dates: start: 20091027
  4. FURSEMID [Concomitant]
     Dates: start: 20091027
  5. NEBILET [Concomitant]
     Dates: start: 20091027
  6. NOVONORM [Concomitant]
     Dosage: TOTAL DAILY DOSE: 3 MG
     Dates: start: 20091027
  7. GLYCEROLTRINITRAT [Concomitant]
     Dates: start: 20091027

REACTIONS (3)
  - DYSPNOEA [None]
  - MYOCARDIAL INFARCTION [None]
  - PULMONARY OEDEMA [None]
